FAERS Safety Report 9397483 (Version 1)
Quarter: 2013Q3

REPORT INFORMATION
  Report Type: Spontaneous
  Country: US (occurrence: US)
  Receive Date: 20130712
  Receipt Date: 20130712
  Transmission Date: 20140515
  Serious: Yes (Hospitalization, Other)
  Sender: FDA-Public Use
  Company Number: US-NOVOPROD-382608

PATIENT
  Age: 66 Year
  Sex: Female
  Weight: 75.28 kg

DRUGS (2)
  1. NOVOLOG [Suspect]
     Indication: TYPE 2 DIABETES MELLITUS
     Dosage: 5 UNITS IN AM
     Route: 058
     Dates: start: 201102
  2. LANTUS [Suspect]
     Indication: TYPE 2 DIABETES MELLITUS
     Dosage: 25 UNITS AT BEDTIME
     Route: 058
     Dates: start: 201102

REACTIONS (1)
  - Lung neoplasm malignant [Not Recovered/Not Resolved]
